FAERS Safety Report 16166288 (Version 2)
Quarter: 2019Q2

REPORT INFORMATION
  Report Type: Spontaneous
  Country: US (occurrence: US)
  Receive Date: 20190406
  Receipt Date: 20190505
  Transmission Date: 20190711
  Serious: No
  Sender: FDA-Public Use
  Company Number: US-JNJFOC-20190307087

PATIENT
  Sex: Male
  Weight: 101.15 kg

DRUGS (3)
  1. ZANTAC [Concomitant]
     Active Substance: RANITIDINE HYDROCHLORIDE
     Route: 065
  2. XARELTO [Suspect]
     Active Substance: RIVAROXABAN
     Indication: THROMBOSIS
     Route: 048
     Dates: start: 2018
  3. XARELTO [Suspect]
     Active Substance: RIVAROXABAN
     Indication: THROMBOSIS
     Route: 048
     Dates: start: 2014, end: 2018

REACTIONS (5)
  - Off label use [Unknown]
  - Product prescribing error [Unknown]
  - Incorrect product administration duration [Unknown]
  - Incorrect dose administered [Unknown]
  - Product lot number issue [Unknown]

NARRATIVE: CASE EVENT DATE: 2018
